FAERS Safety Report 5996734-8 (Version None)
Quarter: 2008Q4

REPORT INFORMATION
  Report Type: 
  Country: None (occurrence: None)
  Receive Date: 20081212
  Receipt Date: 20081023
  Transmission Date: 20090506
  Serious: No
  Sender: FDA-Public Use
  Company Number: US-ABBOTT-08P-163-0483574-00

PATIENT
  Sex: Female
  Weight: 113.95 kg

DRUGS (2)
  1. HUMIRA [Suspect]
     Indication: RHEUMATOID ARTHRITIS
     Route: 058
     Dates: start: 20060101
  2. ALBUTEROL RESCUE INHALER [Concomitant]
     Indication: ASTHMA
     Route: 055

REACTIONS (1)
  - ARTHRALGIA [None]
